FAERS Safety Report 6750411-4 (Version None)
Quarter: 2010Q2

REPORT INFORMATION
  Report Type: 
  Country: None (occurrence: None)
  Receive Date: 20100601
  Receipt Date: 20100519
  Transmission Date: 20101027
  Serious: Yes (Life-Threatening, Disabling, Other)
  Sender: FDA-Public Use
  Company Number: CA-ELI_LILLY_AND_COMPANY-CA201005005313

PATIENT
  Sex: Female
  Weight: 83.9 kg

DRUGS (3)
  1. ZYPREXA [Suspect]
     Dates: start: 20000101, end: 20020501
  2. ZOLOFT [Concomitant]
     Dates: start: 20000101, end: 20020501
  3. EFFEXOR [Concomitant]
     Dates: start: 20000101, end: 20020501

REACTIONS (19)
  - ABDOMINAL PAIN [None]
  - ANGINA PECTORIS [None]
  - APPENDICITIS [None]
  - CHEST PAIN [None]
  - CHILLS [None]
  - COUGH [None]
  - DISABILITY [None]
  - DIZZINESS [None]
  - DRUG INEFFECTIVE [None]
  - DYSPNOEA [None]
  - DYSSTASIA [None]
  - FALL [None]
  - GAIT DISTURBANCE [None]
  - INSOMNIA [None]
  - INTESTINAL PERFORATION [None]
  - MALAISE [None]
  - NAUSEA [None]
  - PALPITATIONS [None]
  - VOMITING [None]
